FAERS Safety Report 6918637-4 (Version None)
Quarter: 2010Q3

REPORT INFORMATION
  Report Type: 
  Country: None (occurrence: None)
  Receive Date: 20100811
  Receipt Date: 20100730
  Transmission Date: 20110219
  Serious: Yes (Other)
  Sender: FDA-Public Use
  Company Number: JP-PFIZER INC-2010065464

PATIENT
  Age: 38 Year
  Sex: Female
  Weight: 51 kg

DRUGS (7)
  1. REVATIO [Suspect]
     Indication: PULMONARY ARTERIAL HYPERTENSION
     Dosage: 20 MG, 2X/DAY
     Route: 048
     Dates: start: 20100511, end: 20100512
  2. REVATIO [Suspect]
     Dosage: 20 MG, 3X/DAY
     Route: 048
     Dates: start: 20100513
  3. BERAPROST SODIUM [Suspect]
     Indication: PULMONARY ARTERIAL HYPERTENSION
     Dosage: 60 UG, 2X/DAY
     Route: 048
     Dates: start: 20100507, end: 20100519
  4. BERAPROST SODIUM [Suspect]
     Dosage: 120 UG, 2X/DAY
     Route: 048
     Dates: start: 20100520
  5. MUCOSTA [Concomitant]
     Dosage: 100 MG, 2X/DAY
     Route: 048
     Dates: start: 20100426
  6. FERROMIA [Concomitant]
     Indication: ANAEMIA
     Dosage: 50 MG, 2X/DAY
     Route: 048
     Dates: start: 20100426
  7. TAKEPRON [Concomitant]
     Indication: PROPHYLAXIS AGAINST GASTROINTESTINAL ULCER
     Dosage: 15 MG, 1X/DAY
     Route: 048
     Dates: start: 20100513

REACTIONS (2)
  - APLASTIC ANAEMIA [None]
  - PLATELET COUNT DECREASED [None]
